FAERS Safety Report 10694024 (Version 3)
Quarter: 2015Q2

REPORT INFORMATION
  Report Type: Report from Study
  Country: US (occurrence: US)
  Receive Date: 20150106
  Receipt Date: 20150416
  Transmission Date: 20150821
  Serious: Yes (Other)
  Sender: FDA-Public Use
  Company Number: US-GLAXOSMITHKLINE-A0964634E

PATIENT
  Age: 79 Year
  Sex: Male
  Weight: 62 kg

DRUGS (1)
  1. DABRAFENIB CAPSULE [Suspect]
     Active Substance: DABRAFENIB
     Indication: MALIGNANT MELANOMA
     Dosage: 50 MG, BID
     Route: 048
     Dates: start: 20111214

REACTIONS (1)
  - Squamous cell carcinoma [Recovered/Resolved]

NARRATIVE: CASE EVENT DATE: 20131015
